FAERS Safety Report 14275832 (Version 1)
Quarter: 2017Q4

REPORT INFORMATION
  Report Type: Spontaneous
  Country: JP (occurrence: JP)
  Receive Date: 20171212
  Receipt Date: 20171212
  Transmission Date: 20180321
  Serious: Yes (Other)
  Sender: FDA-Public Use
  Company Number: JP-PFIZER INC-2017522964

PATIENT
  Age: 5 Year
  Sex: Male

DRUGS (4)
  1. ADRENALINE [Concomitant]
     Active Substance: EPINEPHRINE
     Indication: ASTHMA
     Route: 030
  2. METHYLPREDNISOLONE SODIUM SUCCINATE. [Suspect]
     Active Substance: METHYLPREDNISOLONE SODIUM SUCCINATE
     Indication: ASTHMA
     Dosage: 60 MG
     Route: 042
  3. SALMETEROL XINAFOATE/FLUTICASONE PROPIONATE [Concomitant]
     Active Substance: FLUTICASONE PROPIONATE\SALMETEROL XINAFOATE
     Indication: ASTHMA
  4. PRANLUKAST [Concomitant]
     Active Substance: PRANLUKAST
     Indication: ASTHMA

REACTIONS (2)
  - Asthma [Recovering/Resolving]
  - Condition aggravated [Recovering/Resolving]
